FAERS Safety Report 21268639 (Version 1)
Quarter: 2022Q3

REPORT INFORMATION
  Report Type: Report from Study
  Country: DE (occurrence: DE)
  Receive Date: 20220830
  Receipt Date: 20220830
  Transmission Date: 20221027
  Serious: Yes (Life-Threatening, Hospitalization, Other)
  Sender: FDA-Public Use
  Company Number: DE-NOVARTISPH-NVSC2022DE194489

PATIENT
  Sex: Female

DRUGS (8)
  1. UNSPECIFIED INGREDIENT [Suspect]
     Active Substance: UNSPECIFIED INGREDIENT
     Indication: Product used for unknown indication
     Dosage: UNK
     Route: 065
  2. METHOTREXATE [Suspect]
     Active Substance: METHOTREXATE
     Indication: Rheumatoid arthritis
     Dosage: 20 MG
     Route: 065
     Dates: start: 20121024
  3. METHOTREXATE [Suspect]
     Active Substance: METHOTREXATE
     Dosage: 20 MG
     Route: 065
     Dates: start: 20130128
  4. ENBREL [Suspect]
     Active Substance: ETANERCEPT
     Indication: Rheumatoid arthritis
     Dosage: 50 MG
     Route: 065
     Dates: start: 201301
  5. ENBREL [Suspect]
     Active Substance: ETANERCEPT
     Dosage: 50 MG  (LAST ADMINISTRATION)
     Route: 065
     Dates: start: 201610
  6. ENBREL [Suspect]
     Active Substance: ETANERCEPT
     Dosage: 50 MG
     Route: 065
     Dates: start: 201210
  7. ENBREL [Suspect]
     Active Substance: ETANERCEPT
     Dosage: 50 MG (LAST ADMINISTRATION)
     Route: 065
     Dates: start: 201211
  8. ETANERCEPT [Suspect]
     Active Substance: ETANERCEPT
     Indication: Rheumatoid arthritis
     Dosage: 50 MG
     Route: 065
     Dates: start: 202008

REACTIONS (4)
  - Anaphylactic reaction [Unknown]
  - Posterior reversible encephalopathy syndrome [Recovered/Resolved]
  - Sepsis [Unknown]
  - Rash [Unknown]

NARRATIVE: CASE EVENT DATE: 20191201
